FAERS Safety Report 5125207-X (Version None)
Quarter: 2006Q4

REPORT INFORMATION
  Report Type: 
  Country: None (occurrence: None)
  Receive Date: 20061006
  Receipt Date: 20060922
  Transmission Date: 20070319
  Serious: Yes (Hospitalization)
  Sender: FDA-Public Use
  Company Number: US194553

PATIENT
  Age: 54 Year
  Sex: Female

DRUGS (3)
  1. NEUPOGEN [Suspect]
     Indication: NEUTROPENIA
  2. MYCOPHENOLATE MOFETIL [Concomitant]
  3. CYCLOPHOSPHAMIDE [Concomitant]

REACTIONS (8)
  - CONDITION AGGRAVATED [None]
  - DEPENDENCE ON ENABLING MACHINE OR DEVICE [None]
  - DIALYSIS [None]
  - DRUG INEFFECTIVE [None]
  - OLIGURIA [None]
  - PNEUMONIA KLEBSIELLA [None]
  - RENAL FAILURE [None]
  - SYSTEMIC LUPUS ERYTHEMATOSUS [None]
